FAERS Safety Report 25196848 (Version 2)
Quarter: 2025Q2

REPORT INFORMATION
  Report Type: Spontaneous
  Country: US (occurrence: US)
  Receive Date: 20250415
  Receipt Date: 20250605
  Transmission Date: 20250716
  Serious: No
  Sender: NOVARTIS
  Company Number: US-002147023-NVSC2025US060934

PATIENT
  Age: 70 Year
  Sex: Female
  Weight: 88.889 kg

DRUGS (1)
  1. KISQALI [Suspect]
     Active Substance: RIBOCICLIB SUCCINATE
     Indication: Breast cancer female
     Route: 048
     Dates: start: 20230701

REACTIONS (2)
  - Dry skin [Unknown]
  - Nail bed disorder [Unknown]
